FAERS Safety Report 13075341 (Version 2)
Quarter: 2017Q1

REPORT INFORMATION
  Report Type: Spontaneous
  Country: FR (occurrence: FR)
  Receive Date: 20161230
  Receipt Date: 20170112
  Transmission Date: 20170428
  Serious: Yes (Other)
  Sender: FDA-Public Use
  Company Number: FR-BRISTOL-MYERS SQUIBB COMPANY-BMS-2016-080026

PATIENT
  Sex: Male
  Weight: 73 kg

DRUGS (6)
  1. XEROQUEL [Concomitant]
     Active Substance: QUETIAPINE FUMARATE
     Indication: BIPOLAR I DISORDER
     Dosage: 300 MG, QD
     Route: 048
     Dates: start: 2014
  2. ALPRAZOLAM. [Concomitant]
     Active Substance: ALPRAZOLAM
     Indication: BIPOLAR I DISORDER
     Dosage: 2 TAB, QD
     Route: 048
     Dates: start: 2014
  3. ZOPICLONE [Concomitant]
     Active Substance: ZOPICLONE
     Indication: PRODUCT USED FOR UNKNOWN INDICATION
     Route: 065
  4. AVANAFIL [Concomitant]
     Active Substance: AVANAFIL
     Indication: PRODUCT USED FOR UNKNOWN INDICATION
     Route: 065
  5. OPDIVO [Suspect]
     Active Substance: NIVOLUMAB
     Indication: LUNG NEOPLASM MALIGNANT
     Dosage: 215 MG, UNK
     Route: 042
  6. VENLAFAXINE [Concomitant]
     Active Substance: VENLAFAXINE HYDROCHLORIDE
     Indication: BIPOLAR I DISORDER
     Dosage: 3 TAB, QD
     Route: 048
     Dates: start: 2011

REACTIONS (1)
  - Adrenal insufficiency [Recovering/Resolving]
